FAERS Safety Report 6805635-4 (Version None)
Quarter: 2010Q2

REPORT INFORMATION
  Report Type: 
  Country: None (occurrence: None)
  Receive Date: 20100628
  Receipt Date: 20080122
  Transmission Date: 20101027
  Serious: No
  Sender: FDA-Public Use
  Company Number: US-PFIZER INC-2008007369

PATIENT
  Sex: Male
  Weight: 109.32 kg

DRUGS (5)
  1. GEODON [Suspect]
     Indication: SCHIZOPHRENIA
     Dates: start: 20070101
  2. OLANZAPINE [Concomitant]
  3. KLONOPIN [Concomitant]
  4. CLONIDINE [Concomitant]
  5. CYMBALTA [Concomitant]

REACTIONS (2)
  - INSOMNIA [None]
  - SOMNOLENCE [None]
